FAERS Safety Report 8524128-X (Version None)
Quarter: 2012Q3

REPORT INFORMATION
  Report Type: 
  Country: None (occurrence: None)
  Receive Date: 20120720
  Receipt Date: 20120715
  Transmission Date: 20120928
  Serious: Yes (Death, Other)
  Sender: FDA-Public Use
  Company Number: US-JNJFOC-20120708277

PATIENT

DRUGS (4)
  1. BEVACIZUMAB [Interacting]
     Indication: BREAST CANCER METASTATIC
     Route: 065
  2. CARBOPLATIN [Interacting]
     Indication: BREAST CANCER METASTATIC
     Route: 065
  3. DOXIL [Suspect]
     Indication: BREAST CANCER METASTATIC
     Route: 042
  4. UNKNOWN MEDICATION [Concomitant]
     Indication: BREAST CANCER METASTATIC
     Route: 065

REACTIONS (16)
  - NEUTROPENIA [None]
  - THROMBOCYTOPENIA [None]
  - PANCREATITIS ACUTE [None]
  - PALMAR-PLANTAR ERYTHRODYSAESTHESIA SYNDROME [None]
  - DEATH [None]
  - BREAST CANCER METASTATIC [None]
  - ODYNOPHAGIA [None]
  - NAUSEA [None]
  - ABDOMINAL PAIN [None]
  - PANCREATITIS [None]
  - ABDOMINAL DISTENSION [None]
  - HYPERTENSION [None]
  - CARDIAC FAILURE CONGESTIVE [None]
  - STOMATITIS [None]
  - DRUG INTERACTION [None]
  - OSTEONECROSIS [None]
